FAERS Safety Report 10034366 (Version 1)
Quarter: 2014Q1

REPORT INFORMATION
  Report Type: Spontaneous
  Country: US (occurrence: None)
  Receive Date: 20140324
  Receipt Date: 20140324
  Transmission Date: 20141002
  Serious: Yes (Hospitalization)
  Sender: FDA-Public Use
  Company Number: None

PATIENT
  Age: 67 Year
  Sex: Female
  Weight: 57.6 kg

DRUGS (11)
  1. REMICADE [Suspect]
     Indication: COLITIS ULCERATIVE
     Route: 042
  2. FENOFIBRATE [Concomitant]
  3. XALATAN [Concomitant]
  4. METOPROLOL [Concomitant]
  5. SINGULAIR [Concomitant]
  6. OMEPRAZOLE [Concomitant]
  7. XARELTO [Concomitant]
  8. PREDNISONE [Concomitant]
  9. FLOVENT [Concomitant]
  10. ALBUTEROL [Concomitant]
  11. MAXITROL [Concomitant]

REACTIONS (11)
  - Arthralgia [None]
  - Vomiting [None]
  - Cough [None]
  - Chest pain [None]
  - Pneumonia [None]
  - Pericardial effusion [None]
  - Lymphadenopathy mediastinal [None]
  - Lymphadenopathy [None]
  - Leukocytosis [None]
  - Hyponatraemia [None]
  - Pericarditis [None]
